FAERS Safety Report 15327926 (Version 1)
Quarter: 2018Q3

REPORT INFORMATION
  Report Type: Spontaneous
  Country: US (occurrence: US)
  Receive Date: 20180828
  Receipt Date: 20180828
  Transmission Date: 20181010
  Serious: No
  Sender: FDA-Public Use
  Company Number: US-ROCHE-2131578

PATIENT
  Sex: Female
  Weight: 80.81 kg

DRUGS (1)
  1. ALECENSA [Suspect]
     Active Substance: ALECTINIB HYDROCHLORIDE
     Indication: LUNG NEOPLASM MALIGNANT
     Dosage: 4 PILLS (150 MG EACH) TWICE DAILY
     Route: 048
     Dates: start: 20180430

REACTIONS (2)
  - No adverse event [Unknown]
  - Wrong dose [Unknown]
